FAERS Safety Report 14912025 (Version 2)
Quarter: 2019Q2

REPORT INFORMATION
  Report Type: Spontaneous
  Country: US (occurrence: US)
  Receive Date: 20180518
  Receipt Date: 20190510
  Transmission Date: 20190711
  Serious: Yes (Other)
  Sender: FDA-Public Use
  Company Number: US-ASTRAZENECA-2018SE53876

PATIENT
  Age: 72 Year
  Sex: Female
  Weight: 54.4 kg

DRUGS (4)
  1. NEXIUM 24HR CLEARMINIS [Suspect]
     Active Substance: ESOMEPRAZOLE MAGNESIUM
     Indication: GASTROOESOPHAGEAL REFLUX DISEASE
     Route: 048
     Dates: end: 20180417
  2. ZANTAC [Concomitant]
     Active Substance: RANITIDINE HYDROCHLORIDE
     Dates: start: 201710
  3. DEXILANT [Concomitant]
     Active Substance: DEXLANSOPRAZOLE
  4. NEXIUM 24HR CLEARMINIS [Suspect]
     Active Substance: ESOMEPRAZOLE MAGNESIUM
     Indication: GASTROOESOPHAGEAL REFLUX DISEASE
     Route: 048
     Dates: end: 20180417

REACTIONS (6)
  - Thyroid cancer [Unknown]
  - Intentional product misuse [Unknown]
  - Gastrooesophageal reflux disease [Recovering/Resolving]
  - Throat irritation [Recovering/Resolving]
  - Confusional state [Unknown]
  - Condition aggravated [Recovering/Resolving]
